FAERS Safety Report 9353320 (Version 4)
Quarter: 2013Q4

REPORT INFORMATION
  Report Type: Spontaneous
  Country: US (occurrence: US)
  Receive Date: 20130618
  Receipt Date: 20131120
  Transmission Date: 20140711
  Serious: Yes (Other)
  Sender: FDA-Public Use
  Company Number: US-PFIZER INC-2013178440

PATIENT
  Age: 85 Year
  Sex: Female
  Weight: 65.76 kg

DRUGS (5)
  1. DETROL LA [Suspect]
     Indication: URINARY INCONTINENCE
     Dosage: 2 MG, 2X/DAY
  2. TOLTERODINE TARTRATE [Suspect]
     Indication: URINARY INCONTINENCE
     Dosage: UNK
  3. LISINOPRIL [Concomitant]
     Dosage: 5 MG, UNK
  4. METOPROLOL [Concomitant]
     Dosage: UNK, 2X/DAY
  5. CITALOPRAM HYDROBROMIDE [Concomitant]
     Indication: DEPRESSION
     Dosage: UNK, 1X/DAY

REACTIONS (2)
  - Lymphoma [Unknown]
  - Drug intolerance [Unknown]
